FAERS Safety Report 8250596-7 (Version None)
Quarter: 2012Q2

REPORT INFORMATION
  Report Type: 
  Country: None (occurrence: None)
  Receive Date: 20120402
  Receipt Date: 20120327
  Transmission Date: 20120825
  Serious: Yes (Death, Other)
  Sender: FDA-Public Use
  Company Number: US-ROXANE LABORATORIES, INC.-2012-RO-00903RO

PATIENT
  Age: 79 Year
  Sex: Female

DRUGS (2)
  1. ANASTROZOLE [Suspect]
     Indication: BREAST CANCER
  2. TRIAMTERENE [Suspect]
     Indication: BREAST CANCER

REACTIONS (2)
  - DEATH [None]
  - TRANSIENT ACANTHOLYTIC DERMATOSIS [None]
